FAERS Safety Report 24987819 (Version 2)
Quarter: 2025Q1

REPORT INFORMATION
  Report Type: Spontaneous
  Country: US (occurrence: US)
  Receive Date: 20250219
  Receipt Date: 20250307
  Transmission Date: 20250409
  Serious: No
  Sender: LUPIN
  Company Number: US-LUPIN PHARMACEUTICALS INC.-2025-00335

PATIENT

DRUGS (1)
  1. RAMIPRIL [Suspect]
     Active Substance: RAMIPRIL
     Indication: Hypertension
     Dosage: 10 MG, QD (1 CAPSULE IN THE MORNING)
     Route: 048
     Dates: start: 202412, end: 20250120

REACTIONS (4)
  - Malaise [Unknown]
  - Somnolence [Unknown]
  - Overdose [Unknown]
  - Recalled product administered [Unknown]
